FAERS Safety Report 14152061 (Version 2)
Quarter: 2017Q4

REPORT INFORMATION
  Report Type: Report from Study
  Country: US (occurrence: US)
  Receive Date: 20171102
  Receipt Date: 20171207
  Transmission Date: 20180321
  Serious: Yes (Other)
  Sender: FDA-Public Use
  Company Number: PHEH2017US035505

PATIENT
  Sex: Female

DRUGS (1)
  1. GLEEVEC [Suspect]
     Active Substance: IMATINIB MESYLATE
     Indication: GASTROINTESTINAL STROMAL TUMOUR
     Dosage: 400 MG, UNK
     Route: 065

REACTIONS (8)
  - Oedema [Unknown]
  - Asthenia [Unknown]
  - Malaise [Unknown]
  - Malignant neoplasm progression [Unknown]
  - Lipoedema [Unknown]
  - Gastrointestinal stromal tumour [Unknown]
  - Mental impairment [Unknown]
  - Urticaria [Unknown]
